FAERS Safety Report 5024342-4 (Version None)
Quarter: 2006Q2

REPORT INFORMATION
  Report Type: 
  Country: None (occurrence: None)
  Receive Date: 20060613
  Receipt Date: 20060602
  Transmission Date: 20061013
  Serious: Yes (Hospitalization, Other)
  Sender: FDA-Public Use
  Company Number: PHBS2006BR08430

PATIENT
  Age: 79 Year
  Sex: Female
  Weight: 52 kg

DRUGS (4)
  1. ZOMETA [Suspect]
     Indication: MULTIPLE MYELOMA
     Dosage: UNK, FOR 3 MONTHS
     Route: 065
  2. ZOMETA [Suspect]
     Route: 065
     Dates: start: 20060401
  3. BLOOD TRANSFUSION, AUXILIARY PRODUCTS [Concomitant]
     Dosage: EVERY MONTH
     Route: 065
  4. ERYTHROPOIETIN HUMAN [Concomitant]
     Route: 065

REACTIONS (13)
  - ANAEMIA [None]
  - ASTHENIA [None]
  - BONE PAIN [None]
  - CONVULSION [None]
  - DYSPNOEA [None]
  - FATIGUE [None]
  - FLATULENCE [None]
  - LISTLESS [None]
  - MUSCULOSKELETAL STIFFNESS [None]
  - PAIN IN EXTREMITY [None]
  - PYREXIA [None]
  - RETCHING [None]
  - VOMITING [None]
